FAERS Safety Report 25363826 (Version 3)
Quarter: 2025Q3

REPORT INFORMATION
  Report Type: Spontaneous
  Country: US (occurrence: US)
  Receive Date: 20250527
  Receipt Date: 20250701
  Transmission Date: 20251020
  Serious: Yes (Other)
  Sender: SANDOZ
  Company Number: US-002147023-NVSC2025US083553

PATIENT
  Age: 68 Year
  Sex: Female

DRUGS (3)
  1. COSENTYX [Suspect]
     Active Substance: SECUKINUMAB
     Indication: Psoriatic arthropathy
     Route: 065
  2. METHOTREXATE [Suspect]
     Active Substance: METHOTREXATE
     Indication: Product used for unknown indication
     Route: 065
  3. UNSPECIFIED INGREDIENT [Suspect]
     Active Substance: UNSPECIFIED INGREDIENT
     Indication: Product used for unknown indication
     Route: 065

REACTIONS (21)
  - Psoriatic arthropathy [Unknown]
  - Synovitis [Unknown]
  - Mixed connective tissue disease [Unknown]
  - Multicentric reticulohistiocytosis [Unknown]
  - Whipple^s disease [Unknown]
  - Seronegative arthritis [Unknown]
  - Systemic scleroderma [Unknown]
  - Sjogren^s syndrome [Unknown]
  - Rheumatoid arthritis [Unknown]
  - Fibromyalgia [Unknown]
  - Systemic lupus erythematosus [Unknown]
  - SAPHO syndrome [Unknown]
  - Polymyalgia rheumatica [Unknown]
  - Haemochromatosis [Unknown]
  - Osteoarthritis [Unknown]
  - Repetitive strain injury [Unknown]
  - Arthritis infective [Unknown]
  - Neoplasm [Unknown]
  - Gout [Unknown]
  - Injury [Unknown]
  - Arthralgia [Unknown]
